FAERS Safety Report 15615420 (Version 1)
Quarter: 2018Q4

REPORT INFORMATION
  Report Type: Report from Study
  Country: None (occurrence: CO)
  Receive Date: 20181114
  Receipt Date: 20181114
  Transmission Date: 20190205
  Serious: Yes (Hospitalization)
  Sender: FDA-Public Use
  Company Number: CO-ABBVIE-18K-036-2554933-00

PATIENT
  Age: 71 Year
  Sex: Female
  Weight: 45 kg

DRUGS (1)
  1. HUMIRA [Suspect]
     Active Substance: ADALIMUMAB
     Indication: RHEUMATOID ARTHRITIS
     Route: 058
     Dates: start: 20130312, end: 20180612

REACTIONS (5)
  - Malaise [Recovering/Resolving]
  - Cough [Recovering/Resolving]
  - Thirst [Recovering/Resolving]
  - Disorientation [Recovering/Resolving]
  - Pyrexia [Recovering/Resolving]

NARRATIVE: CASE EVENT DATE: 20181105
